FAERS Safety Report 6395380-4 (Version None)
Quarter: 2009Q4

REPORT INFORMATION
  Report Type: 
  Country: None (occurrence: None)
  Receive Date: 20091009
  Receipt Date: 20091001
  Transmission Date: 20100525
  Serious: Yes (Other)
  Sender: FDA-Public Use
  Company Number: GB-ELI_LILLY_AND_COMPANY-GB200910000362

PATIENT
  Age: 71 Year
  Sex: Male
  Weight: 107 kg

DRUGS (2)
  1. HUMALOG [Suspect]
     Indication: DIABETES MELLITUS
     Route: 058
     Dates: start: 20090608
  2. INDORAMIN [Concomitant]
     Indication: BENIGN PROSTATIC HYPERPLASIA
     Dosage: 20 MG, UNK
     Route: 048
     Dates: start: 20010125

REACTIONS (2)
  - DYSURIA [None]
  - URINE FLOW DECREASED [None]
